FAERS Safety Report 8594566-8 (Version None)
Quarter: 2012Q3

REPORT INFORMATION
  Report Type: 
  Country: None (occurrence: None)
  Receive Date: 20120815
  Receipt Date: 20120806
  Transmission Date: 20120928
  Serious: Yes (Other)
  Sender: FDA-Public Use
  Company Number: NO-ELI_LILLY_AND_COMPANY-NO201208002860

PATIENT
  Age: 63 Year
  Sex: Male

DRUGS (3)
  1. ZYPREXA [Suspect]
     Dosage: 15 MG, UNK
  2. ABILIFY [Concomitant]
     Dosage: 20 MG, UNK
  3. ABILIFY [Concomitant]
     Dosage: 30 MG, UNK

REACTIONS (1)
  - DRUG LEVEL INCREASED [None]
